FAERS Safety Report 25940733 (Version 1)
Quarter: 2025Q4

REPORT INFORMATION
  Report Type: Spontaneous
  Country: US (occurrence: None)
  Receive Date: 20251019
  Receipt Date: 20251019
  Transmission Date: 20260118
  Serious: Yes (Hospitalization)
  Sender: FDA-CTU
  Company Number: None

PATIENT
  Age: 5 Month
  Sex: Male

DRUGS (3)
  1. COAGADEX [Suspect]
     Active Substance: COAGULATION FACTOR X HUMAN
     Indication: Coagulopathy
     Dosage: OTHER FREQUENCY : TWICE A WEEK;?STRENGTH: 250
     Route: 042
  2. HEPARIN [Concomitant]
     Active Substance: HEPARIN SODIUM
  3. DEVICE [Suspect]
     Active Substance: DEVICE

REACTIONS (1)
  - Vascular device infection [None]

NARRATIVE: CASE EVENT DATE: 20250914
